FAERS Safety Report 9722057 (Version 1)
Quarter: 2013Q4

REPORT INFORMATION
  Report Type: Spontaneous
  Country: US (occurrence: US)
  Receive Date: 20131202
  Receipt Date: 20131202
  Transmission Date: 20140711
  Serious: No
  Sender: FDA-Public Use
  Company Number: US-BIOGENIDEC-2013BI086410

PATIENT
  Age: 36 Year
  Sex: Female
  Weight: 57 kg

DRUGS (7)
  1. TECFIDERA [Suspect]
     Indication: PRODUCT USED FOR UNKNOWN INDICATION
     Route: 048
  2. TECFIDERA [Suspect]
     Indication: PRODUCT USED FOR UNKNOWN INDICATION
     Route: 048
  3. TOPAMAX [Concomitant]
     Route: 048
  4. IMITREX [Concomitant]
     Route: 048
  5. VITAMIN B-2 [Concomitant]
     Route: 048
  6. MAGNESIUM [Concomitant]
     Route: 048
  7. MAXALT [Concomitant]

REACTIONS (8)
  - Weight decreased [Unknown]
  - Migraine [Unknown]
  - Nausea [Unknown]
  - Vomiting [Unknown]
  - Diarrhoea [Unknown]
  - Abdominal pain upper [Unknown]
  - Flushing [Unknown]
  - Pruritus [Unknown]
